FAERS Safety Report 8790829 (Version 1)
Quarter: 2012Q4

REPORT INFORMATION
  Report Type: Spontaneous
  Country: BR (occurrence: None)
  Receive Date: 20120907
  Receipt Date: 20120907
  Transmission Date: 20130627
  Serious: Yes (Death)
  Sender: FDA-Public Use
  Company Number: DSU-2012-06968

PATIENT
  Age: 74 Year
  Sex: Female

DRUGS (2)
  1. OLMETEC [Suspect]
     Indication: DRUG USE FOR UNKNOWN INDICATION
     Route: 048
     Dates: end: 201202
  2. DONEPEZIL [Suspect]
     Indication: ALZHEIMER^S DISEASE
     Dates: start: 20110126

REACTIONS (1)
  - Lung neoplasm malignant [None]
